FAERS Safety Report 5979036-5 (Version None)
Quarter: 2008Q4

REPORT INFORMATION
  Report Type: 
  Country: None (occurrence: None)
  Receive Date: 20081204
  Receipt Date: 20080520
  Transmission Date: 20090506
  Serious: No
  Sender: FDA-Public Use
  Company Number: US-ABBOTT-08P-163-0455474-00

PATIENT
  Age: 57 Year
  Sex: Male

DRUGS (4)
  1. TRICOR [Suspect]
     Indication: BLOOD TRIGLYCERIDES INCREASED
  2. TRICOR [Suspect]
     Indication: BLOOD CHOLESTEROL INCREASED
  3. EZETIMIBE [Concomitant]
     Indication: BLOOD TRIGLYCERIDES INCREASED
  4. EZETIMIBE [Concomitant]
     Indication: BLOOD CHOLESTEROL INCREASED

REACTIONS (4)
  - CHEST DISCOMFORT [None]
  - EXERCISE TOLERANCE DECREASED [None]
  - MUSCULOSKELETAL DISCOMFORT [None]
  - MYALGIA [None]
